FAERS Safety Report 9542685 (Version 1)
Quarter: 2013Q3

REPORT INFORMATION
  Report Type: Spontaneous
  Country: US (occurrence: US)
  Receive Date: 20130923
  Receipt Date: 20130923
  Transmission Date: 20140515
  Serious: Yes (Life-Threatening)
  Sender: FDA-Public Use
  Company Number: US-JNJFOC-20130909652

PATIENT
  Age: 5 Month
  Sex: Male

DRUGS (6)
  1. DOXORUBICIN [Suspect]
     Indication: MALIGNANT NEOPLASM OF THORAX
     Route: 042
  2. DOXORUBICIN [Suspect]
     Indication: MALIGNANT NEOPLASM OF THORAX
     Dosage: INCREASE IN DOSE UPTO 37.5 MG/M2/DOSE
     Route: 042
  3. VINCRISTINE [Suspect]
     Indication: MALIGNANT NEOPLASM OF THORAX
     Route: 065
  4. VINCRISTINE [Suspect]
     Indication: MALIGNANT NEOPLASM OF THORAX
     Dosage: WITH AN INCREASE IN DOSE FOR EACH CYCLE 0.067 MG/KG/DOSE
     Route: 065
  5. CYCLOPHOSPHAMIDE [Suspect]
     Indication: MALIGNANT NEOPLASM OF THORAX
     Route: 065
  6. CYCLOPHOSPHAMIDE [Suspect]
     Indication: MALIGNANT NEOPLASM OF THORAX
     Dosage: WITH AN INCREASE IN DOSE FOR EACH CYCLE 70 MG/KG/DOSE
     Route: 065

REACTIONS (3)
  - Klebsiella sepsis [Unknown]
  - Drug ineffective [Unknown]
  - Off label use [Unknown]
